FAERS Safety Report 20849079 (Version 1)
Quarter: 2022Q2

REPORT INFORMATION
  Report Type: Spontaneous
  Country: IT (occurrence: IT)
  Receive Date: 20220519
  Receipt Date: 20220519
  Transmission Date: 20220721
  Serious: Yes (Other)
  Sender: FDA-Public Use
  Company Number: None

PATIENT
  Age: 16 Year
  Sex: Female
  Weight: 56 kg

DRUGS (1)
  1. DROSPIRENONE [Suspect]
     Active Substance: DROSPIRENONE
     Indication: Polycystic ovaries
     Route: 048
     Dates: start: 20220127, end: 20220216

REACTIONS (1)
  - Folliculitis [Recovered/Resolved with Sequelae]

NARRATIVE: CASE EVENT DATE: 20220205
